FAERS Safety Report 26139881 (Version 1)
Quarter: 2025Q4

REPORT INFORMATION
  Report Type: Spontaneous
  Country: US (occurrence: None)
  Receive Date: 20251209
  Receipt Date: 20251209
  Transmission Date: 20260118
  Serious: Yes (Disabling)
  Sender: FDA-CTU
  Company Number: None

PATIENT
  Age: 58 Year
  Sex: Female
  Weight: 146.25 kg

DRUGS (3)
  1. OZEMPIC [Suspect]
     Active Substance: SEMAGLUTIDE
     Indication: Type 2 diabetes mellitus
     Dates: start: 20240703, end: 20241201
  2. MESALAMINE [Concomitant]
     Active Substance: MESALAMINE
  3. Hymiroz [Concomitant]

REACTIONS (2)
  - Crohn^s disease [None]
  - Therapy cessation [None]

NARRATIVE: CASE EVENT DATE: 20241001
